FAERS Safety Report 9764072 (Version 1)
Quarter: 2013Q4

REPORT INFORMATION
  Report Type: Spontaneous
  Country: US (occurrence: US)
  Receive Date: 20131216
  Receipt Date: 20131216
  Transmission Date: 20140711
  Serious: No
  Sender: FDA-Public Use
  Company Number: US-BIOGENIDEC-2013BI110878

PATIENT
  Age: 56 Year
  Sex: Female

DRUGS (4)
  1. TECFIDERA [Suspect]
     Indication: MULTIPLE SCLEROSIS
     Route: 048
     Dates: start: 20130724
  2. CYMBALTA [Concomitant]
  3. TRAZODONE HCL [Concomitant]
  4. WELLBUTRIN [Concomitant]

REACTIONS (1)
  - Food poisoning [Unknown]
